FAERS Safety Report 21872810 (Version 1)
Quarter: 2023Q1

REPORT INFORMATION
  Report Type: Spontaneous
  Country: US (occurrence: US)
  Receive Date: 20230117
  Receipt Date: 20230117
  Transmission Date: 20230417
  Serious: Yes (Death, Hospitalization)
  Sender: FDA-Public Use
  Company Number: US-BAYER-2023A003675

PATIENT
  Age: 43 Year
  Sex: Male

DRUGS (2)
  1. ACETAMINOPHEN\DEXTROMETHORPHAN\PHENYLEPHRINE [Suspect]
     Active Substance: ACETAMINOPHEN\DEXTROMETHORPHAN\PHENYLEPHRINE
     Route: 048
  2. ACETAMINOPHEN [Suspect]
     Active Substance: ACETAMINOPHEN
     Route: 048

REACTIONS (2)
  - Product administration error [Fatal]
  - Toxicity to various agents [Fatal]
